FAERS Safety Report 4782833-5 (Version None)
Quarter: 2005Q3

REPORT INFORMATION
  Report Type: 
  Country: None (occurrence: None)
  Receive Date: 20050914
  Receipt Date: 20050608
  Transmission Date: 20060218
  Serious: Yes (Death, Hospitalization)
  Sender: FDA-Public Use
  Company Number: 163-20785-05060122

PATIENT
  Age: 53 Year
  Sex: Male

DRUGS (4)
  1. THALOMID [Suspect]
     Indication: MALIGNANT MELANOMA
     Dosage: 250 MG, DAILY, ORAL
     Route: 048
     Dates: start: 20050209, end: 20050510
  2. DECADRON [Concomitant]
  3. PAXIL [Concomitant]
  4. LORTAB [Concomitant]

REACTIONS (3)
  - DEATH [None]
  - DISEASE PROGRESSION [None]
  - METASTASES TO CENTRAL NERVOUS SYSTEM [None]
